FAERS Safety Report 12710866 (Version 2)
Quarter: 2017Q2

REPORT INFORMATION
  Report Type: Report from Study
  Country: US (occurrence: US)
  Receive Date: 20160902
  Receipt Date: 20170531
  Transmission Date: 20170830
  Serious: Yes (Hospitalization)
  Sender: FDA-Public Use
  Company Number: US-PFIZER INC-2013348102

PATIENT
  Age: 59 Year
  Sex: Female
  Weight: 111 kg

DRUGS (19)
  1. COZAAR [Concomitant]
     Active Substance: LOSARTAN POTASSIUM
     Indication: HYPERTENSION
     Dosage: UNK
  2. FLONASE [Concomitant]
     Active Substance: FLUTICASONE PROPIONATE
     Indication: RHINITIS ALLERGIC
     Dosage: UNK
  3. COCONUT OIL [Concomitant]
     Active Substance: COCONUT OIL
     Indication: HYPERLIPIDAEMIA
     Dosage: UNK
  4. LORTAB [Concomitant]
     Active Substance: ACETAMINOPHEN\HYDROCODONE BITARTRATE
     Indication: PAIN
     Dosage: UNK, PRN
  5. GABAPENTIN. [Concomitant]
     Active Substance: GABAPENTIN
     Indication: OSTEOARTHRITIS
     Dosage: UNK
  6. CELECOXIB. [Suspect]
     Active Substance: CELECOXIB
     Indication: OSTEOARTHRITIS
     Dosage: 0 MG, UNK
     Route: 048
     Dates: start: 20101222, end: 20131122
  7. GLUCOPHAGE [Concomitant]
     Active Substance: METFORMIN HYDROCHLORIDE
     Indication: TYPE 2 DIABETES MELLITUS
     Dosage: UNK
  8. PRENATAL VITAMINS [Concomitant]
     Active Substance: VITAMINS
     Indication: PROPHYLAXIS
     Dosage: UNK
  9. OXYMETAZOLINE HYDROCHLORIDE. [Concomitant]
     Active Substance: OXYMETAZOLINE HYDROCHLORIDE
     Indication: RHINITIS ALLERGIC
     Route: 048
  10. AMLODIPINE BESYLATE. [Concomitant]
     Active Substance: AMLODIPINE BESYLATE
     Indication: HYPERTENSION
     Dosage: UNK
  11. NOVOLOG MIX 70/30 [Concomitant]
     Active Substance: INSULIN ASPART
     Indication: TYPE 2 DIABETES MELLITUS
     Dosage: UNK
  12. CELECOXIB. [Suspect]
     Active Substance: CELECOXIB
     Indication: RHEUMATOID ARTHRITIS
  13. NEXIUM [Concomitant]
     Active Substance: ESOMEPRAZOLE MAGNESIUM
     Indication: PROPHYLAXIS
     Dosage: 20 MG, QD
     Route: 048
     Dates: start: 20101222, end: 20131122
  14. AMARYL [Concomitant]
     Active Substance: GLIMEPIRIDE
     Indication: TYPE 2 DIABETES MELLITUS
     Dosage: UNK
  15. METOPROLOL TARTRATE. [Concomitant]
     Active Substance: METOPROLOL TARTRATE
     Indication: HYPERTENSION
     Dosage: UNK
  16. FLAXSEED [Concomitant]
     Active Substance: FLAX SEED
     Indication: HYPERLIPIDAEMIA
     Dosage: UNK
  17. FISH OIL [Concomitant]
     Active Substance: FISH OIL
     Indication: HYPERLIPIDAEMIA
     Dosage: UNK
  18. ESTRADIOL. [Suspect]
     Active Substance: ESTRADIOL
     Dosage: 1 MG, QD
     Route: 048
     Dates: start: 1999, end: 20131122
  19. BENADRYL [Concomitant]
     Active Substance: DIPHENHYDRAMINE HYDROCHLORIDE
     Indication: RHINITIS ALLERGIC
     Dosage: UNK

REACTIONS (1)
  - Breast cancer in situ [Recovered/Resolved]

NARRATIVE: CASE EVENT DATE: 20131011
